FAERS Safety Report 24972768 (Version 1)
Quarter: 2025Q1

REPORT INFORMATION
  Report Type: Spontaneous
  Country: CN (occurrence: CN)
  Receive Date: 20250215
  Receipt Date: 20250215
  Transmission Date: 20250409
  Serious: Yes (Hospitalization)
  Sender: NOVITIUM PHARMA
  Company Number: CN-NOVITIUMPHARMA-2025CNNVP00379

PATIENT
  Age: 7 Year
  Sex: Female

DRUGS (19)
  1. DEXAMETHASONE [Suspect]
     Active Substance: DEXAMETHASONE
     Indication: Pyrexia
     Route: 042
  2. DEXAMETHASONE [Suspect]
     Active Substance: DEXAMETHASONE
     Indication: Conjunctival hyperaemia
  3. DEXAMETHASONE [Suspect]
     Active Substance: DEXAMETHASONE
     Indication: Rash
  4. Immune-globulin [Concomitant]
     Indication: Pyrexia
  5. Immune-globulin [Concomitant]
     Indication: Conjunctival hyperaemia
  6. Immune-globulin [Concomitant]
     Indication: Rash
  7. ACYCLOVIR [Concomitant]
     Active Substance: ACYCLOVIR
     Indication: Pyrexia
  8. ACYCLOVIR [Concomitant]
     Active Substance: ACYCLOVIR
     Indication: Conjunctival hyperaemia
  9. ACYCLOVIR [Concomitant]
     Active Substance: ACYCLOVIR
     Indication: Rash
  10. MEROPENEM [Concomitant]
     Active Substance: MEROPENEM
     Indication: Pyrexia
  11. MEROPENEM [Concomitant]
     Active Substance: MEROPENEM
     Indication: Conjunctival hyperaemia
  12. MEROPENEM [Concomitant]
     Active Substance: MEROPENEM
     Indication: Rash
  13. LINEZOLID [Concomitant]
     Active Substance: LINEZOLID
     Indication: Pyrexia
  14. LINEZOLID [Concomitant]
     Active Substance: LINEZOLID
     Indication: Conjunctival hyperaemia
  15. LINEZOLID [Concomitant]
     Active Substance: LINEZOLID
     Indication: Rash
  16. FLUCONAZOLE [Concomitant]
     Active Substance: FLUCONAZOLE
     Indication: Pyrexia
  17. FLUCONAZOLE [Concomitant]
     Active Substance: FLUCONAZOLE
     Indication: Conjunctival hyperaemia
  18. FLUCONAZOLE [Concomitant]
     Active Substance: FLUCONAZOLE
     Indication: Rash
  19. CYCLOSPORINE [Concomitant]
     Active Substance: CYCLOSPORINE
     Indication: Toxic epidermal necrolysis
     Route: 048

REACTIONS (4)
  - Herpes simplex [Recovered/Resolved]
  - Epstein-Barr virus infection [Recovered/Resolved]
  - Mycoplasma infection [Recovered/Resolved]
  - Bacterial infection [Recovered/Resolved]
